FAERS Safety Report 10585521 (Version 1)
Quarter: 2014Q4

REPORT INFORMATION
  Report Type: Spontaneous
  Country: US (occurrence: US)
  Receive Date: 20141114
  Receipt Date: 20141114
  Transmission Date: 20150529
  Serious: No
  Sender: FDA-Public Use
  Company Number: US-ELI_LILLY_AND_COMPANY-US201410011245

PATIENT
  Sex: Male

DRUGS (10)
  1. TRAMADOL [Concomitant]
     Active Substance: TRAMADOL
  2. ZOCOR [Concomitant]
     Active Substance: SIMVASTATIN
     Route: 065
  3. IBUPROFEN. [Concomitant]
     Active Substance: IBUPROFEN
     Route: 065
  4. HUMALOG [Suspect]
     Active Substance: INSULIN LISPRO
     Indication: TYPE 2 DIABETES MELLITUS
     Dosage: UNK
     Route: 065
  5. AMBIEN [Concomitant]
     Active Substance: ZOLPIDEM TARTRATE
     Route: 065
  6. LANTUS [Concomitant]
     Active Substance: INSULIN GLARGINE
     Route: 065
  7. NEURONTIN [Concomitant]
     Active Substance: GABAPENTIN
  8. DIOVAN HCT [Concomitant]
     Active Substance: HYDROCHLOROTHIAZIDE\VALSARTAN
     Route: 065
  9. HUMALOG [Suspect]
     Active Substance: INSULIN LISPRO
     Indication: TYPE 2 DIABETES MELLITUS
     Dosage: UNK, BID
     Route: 065
  10. TYLENOL [Concomitant]
     Active Substance: ACETAMINOPHEN

REACTIONS (3)
  - Wrong drug administered [Recovered/Resolved]
  - Blood glucose increased [Recovered/Resolved]
  - Incorrect product storage [Recovered/Resolved]
